FAERS Safety Report 8150765-0 (Version None)
Quarter: 2012Q1

REPORT INFORMATION
  Report Type: 
  Country: None (occurrence: None)
  Receive Date: 20120220
  Receipt Date: 20120210
  Transmission Date: 20120608
  Serious: Yes (Hospitalization, Other)
  Sender: FDA-Public Use
  Company Number: US-SANOFI-AVENTIS-2011SA054554

PATIENT
  Age: 55 Year
  Sex: Female
  Weight: 93 kg

DRUGS (7)
  1. PLAVIX [Suspect]
     Route: 065
     Dates: start: 20110627, end: 20110810
  2. PLAVIX [Suspect]
     Route: 065
     Dates: start: 20110824
  3. ASPIRIN [Concomitant]
  4. CARVEDILOL [Concomitant]
  5. CYCLOBENZAPRINE [Concomitant]
  6. OLANZAPINE [Suspect]
     Indication: POST-TRAUMATIC STRESS DISORDER
     Route: 065
  7. OLANZAPINE [Suspect]
     Indication: ANXIETY
     Route: 065

REACTIONS (10)
  - OEDEMA PERIPHERAL [None]
  - PAINFUL RESPIRATION [None]
  - DIAPHRAGMATIC RUPTURE [None]
  - LETHARGY [None]
  - CHEST DISCOMFORT [None]
  - PAIN [None]
  - CHEST PAIN [None]
  - PAIN IN EXTREMITY [None]
  - CONDITION AGGRAVATED [None]
  - HIATUS HERNIA [None]
